FAERS Safety Report 9413323 (Version 2)
Quarter: 2013Q3

REPORT INFORMATION
  Report Type: Spontaneous
  Country: US (occurrence: US)
  Receive Date: 20130603
  Receipt Date: 20130815
  Transmission Date: 20140515
  Serious: Yes (Other)
  Sender: FDA-Public Use
  Company Number: ADR-2013-00714

PATIENT
  Age: 10 Year
  Sex: Male

DRUGS (1)
  1. BACLOFEN INTRATHECAL [Suspect]
     Indication: MUSCLE SPASTICITY

REACTIONS (10)
  - Mobility decreased [None]
  - Constipation [None]
  - Gait disturbance [None]
  - Toxicity to various agents [None]
  - Ill-defined disorder [None]
  - Muscle disorder [None]
  - Gait disturbance [None]
  - Asthenia [None]
  - Toxicity to various agents [None]
  - Adverse drug reaction [None]
